FAERS Safety Report 14681047 (Version 4)
Quarter: 2018Q4

REPORT INFORMATION
  Report Type: Report from Study
  Country: US (occurrence: US)
  Receive Date: 20180326
  Receipt Date: 20181008
  Transmission Date: 20190204
  Serious: Yes (Hospitalization)
  Sender: FDA-Public Use
  Company Number: US-JNJFOC-20180327696

PATIENT
  Age: 36 Year
  Sex: Female
  Weight: 69 kg

DRUGS (1)
  1. USTEKINUMAB [Suspect]
     Active Substance: USTEKINUMAB
     Indication: PSORIASIS
     Route: 058
     Dates: start: 201011, end: 201204

REACTIONS (1)
  - Cervix carcinoma stage II [Recovered/Resolved]

NARRATIVE: CASE EVENT DATE: 20180118
